FAERS Safety Report 10214327 (Version 1)
Quarter: 2014Q2

REPORT INFORMATION
  Report Type: Spontaneous
  Country: US (occurrence: None)
  Receive Date: 20140602
  Receipt Date: 20140602
  Transmission Date: 20141212
  Serious: Yes (Other)
  Sender: FDA-Public Use
  Company Number: None

PATIENT
  Age: 49 Year
  Sex: 0
  Weight: 71.22 kg

DRUGS (4)
  1. TOPIRAMATE [Suspect]
     Indication: MIGRAINE
     Route: 048
     Dates: start: 20140509, end: 20140514
  2. OMEPRAZOLE [Concomitant]
  3. VALIUM [Concomitant]
  4. ELMIRON [Concomitant]

REACTIONS (3)
  - Dyspnoea [None]
  - Flushing [None]
  - Swelling face [None]
